FAERS Safety Report 16403734 (Version 2)
Quarter: 2019Q3

REPORT INFORMATION
  Report Type: Spontaneous
  Country: JP (occurrence: JP)
  Receive Date: 20190607
  Receipt Date: 20190724
  Transmission Date: 20191004
  Serious: Yes (Hospitalization)
  Sender: FDA-Public Use
  Company Number: JP-TEVA-2019-JP-1061092

PATIENT
  Age: 60 Year
  Sex: Male

DRUGS (5)
  1. LOXOPROFEN [Suspect]
     Active Substance: LOXOPROFEN
     Indication: ANTIINFLAMMATORY THERAPY
     Route: 065
  2. LEVOFOLINATE [Suspect]
     Active Substance: LEVOLEUCOVORIN CALCIUM
     Indication: RECTAL CANCER
     Route: 065
  3. OXALIPLATIN. [Suspect]
     Active Substance: OXALIPLATIN
     Indication: RECTAL CANCER
     Route: 065
  4. FLUOROURACIL. [Suspect]
     Active Substance: FLUOROURACIL
     Indication: RECTAL CANCER
     Route: 065
  5. HYDROCORTISONE. [Concomitant]
     Active Substance: HYDROCORTISONE
     Indication: RECTAL CANCER
     Route: 065

REACTIONS (4)
  - Haemolytic anaemia [Unknown]
  - White blood cell count decreased [Unknown]
  - Acute kidney injury [Recovering/Resolving]
  - Platelet count decreased [Unknown]
